FAERS Safety Report 13166839 (Version 1)
Quarter: 2017Q1

REPORT INFORMATION
  Report Type: Spontaneous
  Country: US (occurrence: US)
  Receive Date: 20170127
  Receipt Date: 20170127
  Transmission Date: 20170428
  Serious: No
  Sender: FDA-Public Use
  Company Number: None

PATIENT
  Age: 85 Year
  Sex: Male

DRUGS (1)
  1. NINLARO [Suspect]
     Active Substance: IXAZOMIB
     Indication: PLASMA CELL MYELOMA
     Dosage: 3MG DAYS 1, 8 AND 15 ORAL
     Route: 048
     Dates: start: 20170106

REACTIONS (5)
  - Blood glucose increased [None]
  - Blindness unilateral [None]
  - Vomiting [None]
  - Influenza [None]
  - Nausea [None]

NARRATIVE: CASE EVENT DATE: 20170106
